FAERS Safety Report 19180587 (Version 1)
Quarter: 2021Q2

REPORT INFORMATION
  Report Type: Spontaneous
  Country: GB (occurrence: GB)
  Receive Date: 20210426
  Receipt Date: 20210426
  Transmission Date: 20210717
  Serious: Yes (Death, Hospitalization, Congenital Anomaly)
  Sender: FDA-Public Use
  Company Number: GB-PFIZER INC-2021354771

PATIENT
  Age: 79 Year
  Sex: Female
  Weight: 75 kg

DRUGS (17)
  1. ASCORBIC ACID. [Concomitant]
     Active Substance: ASCORBIC ACID
     Dates: start: 20210125
  2. PARACETAMOL [Concomitant]
     Active Substance: ACETAMINOPHEN
     Dates: start: 20151019
  3. TILDIEM LA [Concomitant]
     Active Substance: DILTIAZEM HYDROCHLORIDE
     Dates: start: 20021025
  4. ADALIMUMAB [Suspect]
     Active Substance: ADALIMUMAB
     Indication: ARTHRITIS
  5. LANSOPRAZOLE. [Concomitant]
     Active Substance: LANSOPRAZOLE
     Dates: start: 20171025
  6. VENTOLIN [Concomitant]
     Active Substance: ALBUTEROL SULFATE
     Dates: start: 20171019
  7. COSMOCOL [Concomitant]
     Dates: start: 20210125
  8. SERETIDE [Concomitant]
     Active Substance: FLUTICASONE PROPIONATE\SALMETEROL XINAFOATE
     Dates: start: 20171120
  9. METHOTREXATE SODIUM. [Suspect]
     Active Substance: METHOTREXATE SODIUM
     Indication: ARTHRITIS
     Dosage: 17.5 MG, WEEKLY
     Route: 058
     Dates: start: 201707
  10. LORATADINE. [Concomitant]
     Active Substance: LORATADINE
     Dates: start: 20080717
  11. TOLTERODINE [Concomitant]
     Active Substance: TOLTERODINE
     Dates: start: 20150312
  12. ADALIMUMAB [Suspect]
     Active Substance: ADALIMUMAB
     Indication: ARTHRITIS
     Dosage: UNK
     Route: 058
     Dates: start: 202101
  13. FOLIC ACID. [Concomitant]
     Active Substance: FOLIC ACID
     Dates: start: 20210125
  14. METFORMIN [Concomitant]
     Active Substance: METFORMIN HYDROCHLORIDE
     Dates: start: 20080701
  15. NEFOPAM [Concomitant]
     Active Substance: NEFOPAM
     Indication: ILL-DEFINED DISORDER
     Dates: start: 20160413
  16. FERROUS FUMARATE [Concomitant]
     Active Substance: FERROUS FUMARATE
     Dates: start: 20210125
  17. LOSARTAN. [Concomitant]
     Active Substance: LOSARTAN
     Dates: start: 20080912

REACTIONS (5)
  - Cough [Unknown]
  - Respiratory failure [Not Recovered/Not Resolved]
  - Pyrexia [Unknown]
  - Pneumocystis jirovecii pneumonia [Fatal]
  - Dyspnoea [Unknown]

NARRATIVE: CASE EVENT DATE: 202103
